FAERS Safety Report 9916063 (Version 1)
Quarter: 2014Q1

REPORT INFORMATION
  Report Type: Spontaneous
  Country: US (occurrence: None)
  Receive Date: 20140219
  Receipt Date: 20140219
  Transmission Date: 20141002
  Serious: Yes (Life-Threatening, Hospitalization)
  Sender: FDA-Public Use
  Company Number: None

PATIENT
  Age: 39 Year
  Sex: Female
  Weight: 94.8 kg

DRUGS (2)
  1. CAMRESE [Suspect]
     Indication: MENORRHAGIA
     Route: 048
     Dates: start: 20131027, end: 20140106
  2. CAMRESE [Suspect]
     Indication: CONTRACEPTION
     Route: 048
     Dates: start: 20131027, end: 20140106

REACTIONS (3)
  - Palpitations [None]
  - Heart rate increased [None]
  - Pulmonary embolism [None]
